FAERS Safety Report 9449822 (Version 1)
Quarter: 2013Q3

REPORT INFORMATION
  Report Type: Report from Study
  Country: US (occurrence: US)
  Receive Date: 20130809
  Receipt Date: 20130809
  Transmission Date: 20140515
  Serious: Yes (Other)
  Sender: FDA-Public Use
  Company Number: PHEH2012US023949

PATIENT
  Age: 54 Year
  Sex: Female
  Weight: 72.11 kg

DRUGS (4)
  1. GLEEVEC [Suspect]
     Indication: NEOPLASM MALIGNANT
     Dosage: 400 MG, DAILY
     Route: 048
     Dates: start: 20110817
  2. GLEEVEC [Suspect]
     Dosage: 400 MG, QD
     Route: 048
  3. GLEEVEC [Suspect]
     Dosage: 0.5 DF, UNK
     Route: 048
  4. LISINOPRIL [Concomitant]
     Dosage: 10-12.5 MG, DAILY

REACTIONS (6)
  - Faecal incontinence [Unknown]
  - Diarrhoea [Unknown]
  - Haematochezia [Unknown]
  - Back pain [Recovering/Resolving]
  - Urinary tract infection [Unknown]
  - Muscle spasms [Unknown]
